FAERS Safety Report 12921720 (Version 1)
Quarter: 2016Q4

REPORT INFORMATION
  Report Type: Spontaneous
  Country: HR (occurrence: HR)
  Receive Date: 20161108
  Receipt Date: 20161108
  Transmission Date: 20170207
  Serious: Yes (Hospitalization, Other)
  Sender: FDA-Public Use
  Company Number: HR-PFIZER INC-2016511931

PATIENT
  Sex: Male

DRUGS (1)
  1. PROPOFOL. [Suspect]
     Active Substance: PROPOFOL
     Dosage: 1 DOSE
     Route: 065
     Dates: start: 20160818

REACTIONS (2)
  - Rhabdomyolysis [Unknown]
  - Accidental poisoning [Unknown]

NARRATIVE: CASE EVENT DATE: 20160818
